FAERS Safety Report 22607626 (Version 2)
Quarter: 2023Q4

REPORT INFORMATION
  Report Type: Spontaneous
  Country: US (occurrence: None)
  Receive Date: 20230616
  Receipt Date: 20231012
  Transmission Date: 20240110
  Serious: Yes (Other)
  Sender: FDA-Public Use
  Company Number: US-ROCHE-3366368

PATIENT
  Age: 69 Year
  Sex: Female
  Weight: 190 kg

DRUGS (4)
  1. VABYSMO [Suspect]
     Active Substance: FARICIMAB-SVOA
     Indication: Diabetic retinal oedema
     Route: 050
     Dates: start: 20220830
  2. VABYSMO [Suspect]
     Active Substance: FARICIMAB-SVOA
     Route: 050
     Dates: start: 20221101, end: 20230314
  3. AVASTIN [Suspect]
     Active Substance: BEVACIZUMAB
     Indication: Diabetic retinal oedema
     Dosage: LAST DOSE WAS ON 26/JUL/2022
     Route: 050
     Dates: start: 20220328
  4. AVASTIN [Suspect]
     Active Substance: BEVACIZUMAB
     Dosage: LAST DOSE WAS RECEIVED ON 04/OCT/2022
     Route: 050
     Dates: start: 20220426

REACTIONS (5)
  - Inflammation [Unknown]
  - Uveitis [Not Recovered/Not Resolved]
  - Endophthalmitis [Unknown]
  - Iridocyclitis [Unknown]
  - Off label use [Unknown]

NARRATIVE: CASE EVENT DATE: 20230314
